FAERS Safety Report 9722145 (Version 1)
Quarter: 2013Q4

REPORT INFORMATION
  Report Type: Spontaneous
  Country: US (occurrence: US)
  Receive Date: 20131202
  Receipt Date: 20131202
  Transmission Date: 20140711
  Serious: Yes (Other)
  Sender: FDA-Public Use
  Company Number: US-BIOGENIDEC-2013BI113969

PATIENT
  Sex: Female

DRUGS (7)
  1. TECFIDERA [Suspect]
     Indication: MULTIPLE SCLEROSIS
     Route: 048
  2. AMPYRA [Concomitant]
  3. CYMBALTA [Concomitant]
  4. NUVIGIL [Concomitant]
  5. BUPROPION [Concomitant]
  6. DEPLIN [Concomitant]
  7. SYNTHROID [Concomitant]

REACTIONS (1)
  - Convulsion [Unknown]
